FAERS Safety Report 7536984-2 (Version None)
Quarter: 2011Q2

REPORT INFORMATION
  Report Type: 
  Country: None (occurrence: None)
  Receive Date: 20110609
  Receipt Date: 20110518
  Transmission Date: 20111010
  Serious: No
  Sender: FDA-Public Use
  Company Number: US-JNJFOC-20110509032

PATIENT
  Age: 40 Year
  Sex: Male

DRUGS (2)
  1. INVEGA SUSTENNA [Suspect]
     Indication: SCHIZOPHRENIA
     Route: 030
     Dates: start: 20100801, end: 20110301
  2. INVEGA SUSTENNA [Suspect]
     Route: 030
     Dates: start: 20110301

REACTIONS (4)
  - INSOMNIA [None]
  - DRUG LEVEL INCREASED [None]
  - DYSKINESIA [None]
  - TREMOR [None]
